FAERS Safety Report 22717883 (Version 4)
Quarter: 2024Q3

REPORT INFORMATION
  Report Type: Spontaneous
  Country: US (occurrence: US)
  Receive Date: 20230718
  Receipt Date: 20240712
  Transmission Date: 20241017
  Serious: No
  Sender: VERTEX
  Company Number: US-VERTEX PHARMACEUTICALS-2023-010299

PATIENT
  Sex: Female

DRUGS (1)
  1. TRIKAFTA [Suspect]
     Active Substance: ELEXACAFTOR\IVACAFTOR\TEZACAFTOR
     Indication: Cystic fibrosis
     Dosage: UNK FREQ
     Route: 048
     Dates: start: 20191116, end: 20231129

REACTIONS (6)
  - Anxiety [Unknown]
  - Weight increased [Unknown]
  - Eating disorder [Unknown]
  - Depression [Unknown]
  - Cystic fibrosis related diabetes [Not Recovered/Not Resolved]
  - Mental disorder [Unknown]
